FAERS Safety Report 5253698-2 (Version None)
Quarter: 2007Q1

REPORT INFORMATION
  Report Type: 
  Country: None (occurrence: None)
  Receive Date: 20061201
  Receipt Date: 20060804
  Transmission Date: 20070707
  Serious: No
  Sender: FDA-Public Use
  Company Number: 2006PV018830

PATIENT
  Age: 60 Year
  Sex: Female
  Weight: 137.8935 kg

DRUGS (4)
  1. BYETTA [Suspect]
     Indication: DIABETES MELLITUS NON-INSULIN-DEPENDENT
     Dosage: 5 MCG;BID;SC
     Route: 058
  2. ACTOS [Concomitant]
  3. METFORMIN HCL [Concomitant]
  4. APRIDA [Concomitant]

REACTIONS (1)
  - MEDICATION ERROR [None]
